FAERS Safety Report 4396390-9 (Version None)
Quarter: 2004Q3

REPORT INFORMATION
  Report Type: 
  Country: None (occurrence: None)
  Receive Date: 20040708
  Receipt Date: 20040630
  Transmission Date: 20050211
  Serious: Yes (Hospitalization)
  Sender: FDA-Public Use
  Company Number: GBWYE867601JUL04

PATIENT
  Age: 33 Year
  Sex: Male

DRUGS (2)
  1. BENZHEXOL (TRIHEXYPHENIDYL, TABLET, 0) [Suspect]
     Indication: DYSKINESIA
     Dosage: SEE IMAGE
     Route: 048
     Dates: start: 20040416, end: 20040514
  2. BENZHEXOL (TRIHEXYPHENIDYL, TABLET, 0) [Suspect]
     Indication: DYSKINESIA
     Dosage: SEE IMAGE
     Route: 048
     Dates: start: 20031022

REACTIONS (5)
  - AGITATION [None]
  - ELEVATED MOOD [None]
  - EXCITABILITY [None]
  - HYPOMANIA [None]
  - PARANOIA [None]
